FAERS Safety Report 11334414 (Version 1)
Quarter: 2015Q3

REPORT INFORMATION
  Report Type: Other
  Country: IL (occurrence: IL)
  Receive Date: 20150804
  Receipt Date: 20150804
  Transmission Date: 20151125
  Serious: Yes (Hospitalization)
  Sender: FDA-Public Use
  Company Number: IL-DEXPHARM-20151008

PATIENT
  Age: 61 Year
  Sex: Female

DRUGS (6)
  1. ALENDRONATE [Concomitant]
     Active Substance: ALENDRONATE SODIUM
  2. PREDNISONE. [Suspect]
     Active Substance: PREDNISONE
  3. OMEPRAZOLE. [Interacting]
     Active Substance: OMEPRAZOLE
  4. METHOTREXATE [Interacting]
     Active Substance: METHOTREXATE
     Indication: POLYMYALGIA RHEUMATICA
  5. ASPIRIN. [Interacting]
     Active Substance: ASPIRIN
  6. COLCHICINE. [Concomitant]
     Active Substance: COLCHICINE

REACTIONS (3)
  - Drug interaction [Recovered/Resolved]
  - Hepatotoxicity [Recovered/Resolved]
  - Pancytopenia [Recovered/Resolved]
